FAERS Safety Report 9744350 (Version 1)
Quarter: 2013Q4

REPORT INFORMATION
  Report Type: Spontaneous
  Country: US (occurrence: US)
  Receive Date: 20131210
  Receipt Date: 20131210
  Transmission Date: 20140711
  Serious: Yes (Other)
  Sender: FDA-Public Use
  Company Number: US-FRI-1000052079

PATIENT
  Sex: Female

DRUGS (1)
  1. LINZESS [Suspect]
     Indication: CONSTIPATION
     Dosage: 145 MCG AS NEEDED
     Dates: start: 201308

REACTIONS (4)
  - Rectal haemorrhage [Recovered/Resolved]
  - Flatulence [Not Recovered/Not Resolved]
  - Drug ineffective [Not Recovered/Not Resolved]
  - Intentional drug misuse [Not Recovered/Not Resolved]
